FAERS Safety Report 5063502-3 (Version None)
Quarter: 2006Q3

REPORT INFORMATION
  Report Type: 
  Country: None (occurrence: None)
  Receive Date: 20060727
  Receipt Date: 20060718
  Transmission Date: 20061208
  Serious: Yes (Death, Hospitalization, Other)
  Sender: FDA-Public Use
  Company Number: US-JNJFOC-20060201763

PATIENT
  Sex: Female
  Weight: 64 kg

DRUGS (24)
  1. DURAGESIC-100 [Suspect]
     Route: 062
  2. DURAGESIC-100 [Suspect]
     Route: 062
  3. DURAGESIC-100 [Suspect]
     Indication: PAIN
     Route: 062
  4. PROMETHAZINE [Suspect]
     Indication: DRUG USE FOR UNKNOWN INDICATION
  5. HYDROCODONE [Suspect]
     Indication: PAIN
  6. ZELNORM [Concomitant]
  7. CYMBALTA [Concomitant]
  8. PREVACID [Concomitant]
  9. LOPRESSOR [Concomitant]
  10. REGLAN [Concomitant]
  11. DIOVAN [Concomitant]
  12. ESTRATEST [Concomitant]
  13. PREDNISONE TAB [Concomitant]
  14. PEPCID [Concomitant]
  15. DILAUDID [Concomitant]
     Route: 042
  16. HEPARIN [Concomitant]
     Dosage: 300 UNITS, IV, DAILY
     Route: 042
  17. ATIVAN [Concomitant]
     Dosage: 1 MG, ONE AT BEDTIME
     Route: 048
  18. SODIUM CHLORIDE [Concomitant]
     Route: 042
  19. LOTENSIN [Concomitant]
     Route: 048
  20. INSULIN [Concomitant]
     Dosage: 1-20 UNITS, SUBCUTANEOUS, AFTER MEALS AND AT BEDTIME
     Route: 058
  21. TPN [Concomitant]
     Dosage: 500 ML, INTRAVENOUS PIGGYBACK (IVPB), EVERY 84 HOURS
     Route: 042
  22. CEVIMELINE [Concomitant]
     Route: 048
  23. LORTAB [Concomitant]
     Indication: PAIN
     Dosage: 10 MG, ONE EVERY SIX HOURS AS NEEDED
  24. HYDROCORTISONE TAB [Concomitant]
     Route: 042

REACTIONS (10)
  - BRONCHITIS BACTERIAL [None]
  - DRUG TOXICITY [None]
  - FACIAL BONES FRACTURE [None]
  - FALL [None]
  - MEDICAL DEVICE COMPLICATION [None]
  - MENTAL STATUS CHANGES [None]
  - OVERDOSE [None]
  - PHARMACEUTICAL PRODUCT COMPLAINT [None]
  - PNEUMONIA ASPIRATION [None]
  - RESPIRATORY FAILURE [None]
